FAERS Safety Report 17416152 (Version 1)
Quarter: 2020Q1

REPORT INFORMATION
  Report Type: Spontaneous
  Country: US (occurrence: US)
  Receive Date: 20200213
  Receipt Date: 20200213
  Transmission Date: 20200409
  Serious: No
  Sender: FDA-Public Use
  Company Number: US-TEVA-2020-US-1184343

PATIENT
  Sex: Male

DRUGS (1)
  1. AZITHROMYCIN ANHYDROUS. [Suspect]
     Active Substance: AZITHROMYCIN ANHYDROUS
     Dosage: FORM STRENGTH: 200 MG PER 5 ML
     Route: 048

REACTIONS (7)
  - Crying [Unknown]
  - Abnormal behaviour [Unknown]
  - Urticaria [Unknown]
  - Aggression [Unknown]
  - Anxiety [Unknown]
  - Irritability [Unknown]
  - Emotional disorder [Unknown]
